FAERS Safety Report 20120739 (Version 1)
Quarter: 2021Q4

REPORT INFORMATION
  Report Type: Report from Study
  Country: US (occurrence: US)
  Receive Date: 20211126
  Receipt Date: 20211126
  Transmission Date: 20220303
  Serious: Yes (Life-Threatening, Other)
  Sender: FDA-Public Use
  Company Number: US-GILEAD-2021-0558480

PATIENT
  Age: 85 Year
  Sex: Male
  Weight: 80 kg

DRUGS (6)
  1. REMDESIVIR [Suspect]
     Active Substance: REMDESIVIR
     Indication: COVID-19
     Dosage: 100 MG, QD
     Route: 042
     Dates: start: 20210114, end: 20210117
  2. CENICRIVIROC MESYLATE [Suspect]
     Active Substance: CENICRIVIROC MESYLATE
     Indication: COVID-19
     Dosage: 150 MG, BID
     Route: 050
     Dates: start: 20210114, end: 20210119
  3. NOREPINEPHRINE [Concomitant]
     Active Substance: NOREPINEPHRINE
     Dosage: UNK
     Dates: start: 20210119
  4. PIPERACILLIN AND TAZOBACTAM [Concomitant]
     Active Substance: PIPERACILLIN SODIUM\TAZOBACTAM SODIUM
     Dosage: UNK
     Dates: start: 20210120
  5. DEXAMETHASONE [Concomitant]
     Active Substance: DEXAMETHASONE
     Dosage: UNK
     Dates: start: 20210120
  6. VANCOMYCIN [Concomitant]
     Active Substance: VANCOMYCIN
     Dosage: UNK
     Dates: start: 20210121

REACTIONS (1)
  - Hepatic failure [Unknown]

NARRATIVE: CASE EVENT DATE: 20210121
